FAERS Safety Report 9319375 (Version 1)
Quarter: 2013Q2

REPORT INFORMATION
  Report Type: Report from Study
  Country: CA (occurrence: CA)
  Receive Date: 20130530
  Receipt Date: 20130530
  Transmission Date: 20140414
  Serious: Yes (Hospitalization)
  Sender: FDA-Public Use
  Company Number: PHHY2013CA040898

PATIENT
  Sex: Male

DRUGS (3)
  1. ACLASTA [Suspect]
     Indication: OSTEOPOROSIS
     Dosage: UKN
     Route: 042
     Dates: start: 20100531
  2. ACLASTA [Suspect]
     Dosage: UKN
     Route: 042
     Dates: start: 20110531
  3. ACLASTA [Suspect]
     Dosage: UKN
     Route: 042
     Dates: start: 20120528

REACTIONS (2)
  - Tendon rupture [Unknown]
  - Renal impairment [Unknown]
